FAERS Safety Report 6635237-4 (Version None)
Quarter: 2010Q1

REPORT INFORMATION
  Report Type: 
  Country: None (occurrence: None)
  Receive Date: 20100315
  Receipt Date: 20100305
  Transmission Date: 20100710
  Serious: Yes (Hospitalization, Other)
  Sender: FDA-Public Use
  Company Number: US-ABBOTT-08P-163-0484005-00

PATIENT
  Age: 29 Year
  Sex: Female

DRUGS (21)
  1. NORVIR [Suspect]
     Indication: HIV INFECTION
     Route: 048
     Dates: start: 20100225
  2. NORVIR [Suspect]
     Indication: HUMAN IMMUNODEFICIENCY VIRUS TRANSMISSION
  3. NORVIR [Suspect]
     Indication: PROPHYLAXIS
  4. COMBIVIR [Suspect]
     Indication: HIV INFECTION
     Dosage: FORM: 600/300
     Route: 048
     Dates: start: 20080225
  5. COMBIVIR [Suspect]
     Indication: HUMAN IMMUNODEFICIENCY VIRUS TRANSMISSION
  6. COMBIVIR [Suspect]
     Indication: PROPHYLAXIS
  7. REYATAZ [Suspect]
     Indication: HIV INFECTION
     Route: 048
     Dates: start: 20080225
  8. REYATAZ [Suspect]
     Indication: HUMAN IMMUNODEFICIENCY VIRUS TRANSMISSION
  9. REYATAZ [Suspect]
     Indication: PROPHYLAXIS
  10. RETROVIR [Suspect]
     Indication: HIV INFECTION
     Route: 042
     Dates: start: 20080805, end: 20080805
  11. RETROVIR [Suspect]
     Dates: start: 20080805, end: 20080805
  12. DIFLUCAN [Concomitant]
     Indication: DRUG USE FOR UNKNOWN INDICATION
  13. FERROUS SULFATE TAB [Concomitant]
     Indication: DRUG USE FOR UNKNOWN INDICATION
  14. KEFLEX [Concomitant]
     Indication: DRUG USE FOR UNKNOWN INDICATION
  15. PHENERGAN HCL [Concomitant]
     Indication: DRUG USE FOR UNKNOWN INDICATION
  16. DEMEROL [Concomitant]
     Indication: DRUG USE FOR UNKNOWN INDICATION
  17. VITAMIN TAB [Concomitant]
     Indication: DRUG USE FOR UNKNOWN INDICATION
  18. PEPCID [Concomitant]
     Indication: DRUG USE FOR UNKNOWN INDICATION
  19. MACRODANTIN [Concomitant]
     Indication: DRUG USE FOR UNKNOWN INDICATION
  20. LACTATED RINGER'S [Concomitant]
     Indication: DRUG USE FOR UNKNOWN INDICATION
  21. OXYTOCIN [Concomitant]
     Indication: DRUG USE FOR UNKNOWN INDICATION

REACTIONS (9)
  - ANAEMIA [None]
  - BLOOD PRESSURE INCREASED [None]
  - CHOLELITHIASIS [None]
  - FUNGAL INFECTION [None]
  - MECONIUM STAIN [None]
  - PLACENTAL DISORDER [None]
  - STAPHYLOCOCCAL INFECTION [None]
  - STREPTOCOCCUS TEST POSITIVE [None]
  - UTERINE CONTRACTIONS DURING PREGNANCY [None]
